FAERS Safety Report 7489876-1 (Version None)
Quarter: 2011Q2

REPORT INFORMATION
  Report Type: 
  Country: None (occurrence: None)
  Receive Date: 20110511
  Receipt Date: 20110427
  Transmission Date: 20111010
  Serious: Yes (Other)
  Sender: FDA-Public Use
  Company Number: 2011P1006195

PATIENT
  Age: 63 Year
  Sex: Male
  Weight: 87.9978 kg

DRUGS (4)
  1. IR [Concomitant]
  2. OXYCONTIN [Concomitant]
  3. CHEMOTHERAPY MEDICATIONS (UNSPECIFIED) ) [Concomitant]
  4. FENTANYL [Suspect]
     Indication: PAIN
     Dosage: 1  PATCH;Q72H;TDER
     Route: 062
     Dates: start: 20110423

REACTIONS (2)
  - DEHYDRATION [None]
  - BLOOD PRESSURE DECREASED [None]
